FAERS Safety Report 12117812 (Version 1)
Quarter: 2016Q1

REPORT INFORMATION
  Report Type: Spontaneous
  Country: GB (occurrence: GB)
  Receive Date: 20160226
  Receipt Date: 20160226
  Transmission Date: 20160526
  Serious: Yes (Other)
  Sender: FDA-Public Use
  Company Number: GB-AUROBINDO-AUR-APL-2016-01829

PATIENT
  Age: 43 Year
  Sex: Female

DRUGS (1)
  1. TERBINAFINE 250MG [Suspect]
     Active Substance: TERBINAFINE
     Indication: TINEA PEDIS
     Dosage: 250 MG, ONCE A DAY
     Route: 048
     Dates: start: 20160113, end: 20160204

REACTIONS (2)
  - Urticaria [Not Recovered/Not Resolved]
  - Eyelid oedema [Not Recovered/Not Resolved]

NARRATIVE: CASE EVENT DATE: 20160203
